FAERS Safety Report 9551519 (Version 1)
Quarter: 2013Q3

REPORT INFORMATION
  Report Type: Spontaneous
  Country: US (occurrence: US)
  Receive Date: 20130925
  Receipt Date: 20130925
  Transmission Date: 20140515
  Serious: Yes (Other)
  Sender: FDA-Public Use
  Company Number: US-TEVA-434130USA

PATIENT
  Age: 43 Year
  Sex: Female

DRUGS (1)
  1. COPAXONE [Suspect]
     Indication: MULTIPLE SCLEROSIS
     Dates: start: 20020531

REACTIONS (5)
  - Immediate post-injection reaction [Recovered/Resolved]
  - Blindness [Recovered/Resolved]
  - Flushing [Recovered/Resolved]
  - Dizziness [Recovered/Resolved]
  - Presyncope [Recovered/Resolved]
